FAERS Safety Report 6746391-8 (Version None)
Quarter: 2010Q2

REPORT INFORMATION
  Report Type: 
  Country: None (occurrence: None)
  Receive Date: 20100528
  Receipt Date: 20100524
  Transmission Date: 20101027
  Serious: Yes (Hospitalization)
  Sender: FDA-Public Use
  Company Number: BR-ROCHE-698394

PATIENT
  Sex: Female
  Weight: 94 kg

DRUGS (8)
  1. RIVOTRIL [Suspect]
     Indication: DEPRESSION
     Dosage: 1 TABLET AS NEEDED AT NIGHT
     Route: 048
     Dates: start: 20080101, end: 20100501
  2. METFORMIN HYDROCHLORIDE [Concomitant]
     Dates: start: 20091201, end: 20100501
  3. GLIBENCLAMIDE [Concomitant]
     Dates: start: 20091201, end: 20100501
  4. ASPIRIN [Concomitant]
     Indication: ANTICOAGULANT THERAPY
     Dosage: 2 TABLETS PER DAY AT LUNCH TIME
     Dates: start: 20091201, end: 20100501
  5. HYDROCHLOROTHIAZIDE [Concomitant]
     Indication: HYPERTENSION
     Dates: start: 20091201, end: 20100501
  6. NIFEDIPINE [Concomitant]
     Indication: HYPERTENSION
     Dates: start: 20091201, end: 20100501
  7. SIMVASTATIN [Concomitant]
     Indication: BLOOD CHOLESTEROL ABNORMAL
     Dates: start: 20091201, end: 20100501
  8. SUSTRATE [Concomitant]
     Dates: start: 20091201, end: 20100501

REACTIONS (9)
  - ANGINA PECTORIS [None]
  - BLOOD TRIGLYCERIDES ABNORMAL [None]
  - COUGH [None]
  - HIGH DENSITY LIPOPROTEIN ABNORMAL [None]
  - LOW DENSITY LIPOPROTEIN ABNORMAL [None]
  - MEDICATION ERROR [None]
  - MYOCARDIAL INFARCTION [None]
  - NAUSEA [None]
  - SOMNOLENCE [None]
